FAERS Safety Report 8809563 (Version 1)
Quarter: 2012Q4

REPORT INFORMATION
  Report Type: 
  Country: US (occurrence: US)
  Receive Date: 20120926
  Receipt Date: 20120926
  Transmission Date: 20130627
  Serious: Yes (Death)
  Sender: FDA-Public Use
  Company Number: US-ROCHE-1125971

PATIENT
  Sex: Female

DRUGS (2)
  1. AVASTIN [Suspect]
     Indication: GENITAL NEOPLASM MALIGNANT FEMALE
     Route: 065
     Dates: start: 200806
  2. TAXOTERE [Concomitant]
     Route: 065
     Dates: start: 20071231

REACTIONS (6)
  - Death [Fatal]
  - Disease progression [Unknown]
  - Abdominal distension [Unknown]
  - Pain [Unknown]
  - Nausea [Unknown]
  - Vomiting [Unknown]
